FAERS Safety Report 5453175-X (Version None)
Quarter: 2007Q3

REPORT INFORMATION
  Report Type: 
  Country: None (occurrence: None)
  Receive Date: 20070914
  Receipt Date: 20070905
  Transmission Date: 20080115
  Serious: Yes (Other)
  Sender: FDA-Public Use
  Company Number: US-PFIZER INC-2007074642

PATIENT
  Sex: Female
  Weight: 92.5 kg

DRUGS (6)
  1. GLUCOTROL XL [Suspect]
     Indication: BLOOD GLUCOSE INCREASED
  2. GLUCOPHAGE XR [Suspect]
     Indication: BLOOD GLUCOSE INCREASED
  3. LISINOPRIL [Concomitant]
  4. LIPITOR [Concomitant]
  5. ZYRTEC [Concomitant]
  6. ELAVIL [Concomitant]

REACTIONS (3)
  - BLOOD GLUCOSE FLUCTUATION [None]
  - BLOOD GLUCOSE INCREASED [None]
  - WEIGHT DECREASED [None]
